FAERS Safety Report 4766978-1 (Version None)
Quarter: 2005Q3

REPORT INFORMATION
  Report Type: 
  Country: None (occurrence: None)
  Receive Date: 20050908
  Receipt Date: 20050902
  Transmission Date: 20060218
  Serious: Yes (Other)
  Sender: FDA-Public Use
  Company Number: 216675

PATIENT
  Age: 55 Year
  Sex: Female
  Weight: 64 kg

DRUGS (14)
  1. RITUXAN [Suspect]
     Indication: NON-HODGKIN'S LYMPHOMA
     Dosage: 550 MG
     Dates: start: 20040806
  2. CYCLOPHOSPHAMIDE [Suspect]
     Indication: NON-HODGKIN'S LYMPHOMA
     Dosage: 1600 MG, INTRAVENOUS
     Route: 042
     Dates: start: 20040806
  3. ETOPOSIDE [Suspect]
     Indication: NON-HODGKIN'S LYMPHOMA
     Dosage: 130 MG, INTRAVENOUS
     Route: 042
     Dates: start: 20040806
  4. CYTARABINE [Suspect]
     Indication: NON-HODGKIN'S LYMPHOMA
     Dosage: 2.6 G, INTRAVENOUS
     Route: 042
     Dates: start: 20040806
  5. DECADRON [Suspect]
     Indication: NON-HODGKIN'S LYMPHOMA
     Dosage: 40 MG, INTRAVENOUS
     Route: 042
     Dates: start: 20040806
  6. IFOSFAMIDE [Suspect]
     Dosage: 2 G, INTRAVENOUS
     Route: 042
     Dates: start: 20040910
  7. PARAPLATIN [Suspect]
     Dosage: 300 MG, INTRAVENOUS
     Route: 042
     Dates: start: 20040910
  8. CELESTAMINE (DEXCHLORPHENIRAMINE MALEATE, BETAMETHASONE) [Concomitant]
  9. PYRINAZIN (JAPAN) (ACETAMINOPHEN) [Concomitant]
  10. MEROPENEM (MEROPENEM) [Concomitant]
  11. MARZULENE S (LEVOGLUTAMIDE, DISODIUM GUANYLATE) [Concomitant]
  12. SULFAMETHOXAZOLE + TRIMETHOPRIM [Concomitant]
  13. FUNGIZONE [Concomitant]
  14. MAGNESIUM OXIDE (MAGNESIUM OXIDE) [Concomitant]

REACTIONS (11)
  - BASOPHIL PERCENTAGE INCREASED [None]
  - BLOOD IMMUNOGLOBULIN G DECREASED [None]
  - BLOOD IMMUNOGLOBULIN M DECREASED [None]
  - BLOOD SODIUM DECREASED [None]
  - CYTOMEGALOVIRUS INFECTION [None]
  - EOSINOPHIL PERCENTAGE INCREASED [None]
  - NEUTROPHIL PERCENTAGE DECREASED [None]
  - PLATELET COUNT DECREASED [None]
  - PYREXIA [None]
  - TACHYCARDIA [None]
  - WHITE BLOOD CELL COUNT DECREASED [None]
